FAERS Safety Report 9232058 (Version 1)
Quarter: 2013Q2

REPORT INFORMATION
  Report Type: Other
  Country: DE (occurrence: DE)
  Receive Date: 20130415
  Receipt Date: 20130415
  Transmission Date: 20140414
  Serious: Yes (Other)
  Sender: FDA-Public Use
  Company Number: DE-NICOBRDEVP-2013-06546

PATIENT
  Age: 35 Year
  Sex: Female

DRUGS (7)
  1. LAMOTRIGINE (UNKNOWN) [Suspect]
     Indication: EPILEPSY
     Dosage: 100 MG, QID
     Route: 048
  2. CELESTAN                           /00008501/ [Concomitant]
     Indication: MATERNAL THERAPY TO ENHANCE FOETAL LUNG MATURITY
     Route: 065
  3. UTROGEST [Concomitant]
     Indication: SHORTENED CERVIX
     Dosage: 200 MG, DAILY
     Route: 065
     Dates: start: 20120229, end: 20120320
  4. IBUPROFEN [Concomitant]
     Indication: PAIN
     Route: 065
  5. FRAGMIN P [Concomitant]
     Indication: THROMBOSIS PROPHYLAXIS
     Dosage: UNK
     Route: 065
     Dates: start: 20120229, end: 20130320
  6. NIFEHEXAL [Concomitant]
     Indication: TOCOLYSIS
     Dosage: UNK
     Route: 065
     Dates: end: 20120320
  7. TRACTOCILE [Concomitant]
     Indication: TOCOLYSIS
     Dosage: UNK
     Route: 065
     Dates: start: 20120229, end: 20120229

REACTIONS (3)
  - Premature labour [Unknown]
  - Gestational diabetes [Unknown]
  - Cervical incompetence [Unknown]
